FAERS Safety Report 7693032-1 (Version None)
Quarter: 2011Q3

REPORT INFORMATION
  Report Type: 
  Country: None (occurrence: None)
  Receive Date: 20110819
  Receipt Date: 20110808
  Transmission Date: 20111222
  Serious: Yes (Other)
  Sender: FDA-Public Use
  Company Number: FI-JNJFOC-20110805667

PATIENT
  Age: 57 Year
  Sex: Male

DRUGS (1)
  1. REMICADE [Suspect]
     Indication: IRITIS
     Dosage: 300 MG AT WEEKS 0,2 AND 6 FOR THE TREATMENT OF IRITIS
     Route: 042
     Dates: start: 20110101

REACTIONS (1)
  - PULMONARY EMBOLISM [None]
